FAERS Safety Report 25215968 (Version 1)
Quarter: 2025Q2

REPORT INFORMATION
  Report Type: Spontaneous
  Country: US (occurrence: US)
  Receive Date: 20250418
  Receipt Date: 20250418
  Transmission Date: 20250717
  Serious: No
  Sender: TEVA
  Company Number: US-TEVA-VS-3316590

PATIENT
  Age: 33 Year

DRUGS (1)
  1. UZEDY [Suspect]
     Active Substance: RISPERIDONE
     Indication: Schizoaffective disorder
     Dosage: INJECTABLE SUSPENSION, 75/0.21MG/ML
     Route: 065

REACTIONS (2)
  - Loss of libido [Unknown]
  - Adverse drug reaction [Unknown]
